FAERS Safety Report 9051414 (Version 1)
Quarter: 2013Q1

REPORT INFORMATION
  Report Type: Spontaneous
  Country: US (occurrence: US)
  Receive Date: 20130206
  Receipt Date: 20130206
  Transmission Date: 20140127
  Serious: No
  Sender: FDA-Public Use
  Company Number: US-ALLERGAN-1207151US

PATIENT
  Age: 45 Year
  Sex: Female

DRUGS (2)
  1. RESTASIS [Suspect]
     Indication: DRY EYE
     Dosage: 2 GTT, BID
     Route: 047
  2. ABREVA [Concomitant]
     Indication: ORAL HERPES
     Dosage: UNK
     Route: 061

REACTIONS (10)
  - Acne [Not Recovered/Not Resolved]
  - Swollen tear duct [Recovered/Resolved]
  - Madarosis [Recovered/Resolved]
  - Oral herpes [Recovered/Resolved]
  - Eye injury [Recovered/Resolved]
  - Blister [Recovered/Resolved]
  - Lacrimal duct pigmentation [Recovered/Resolved]
  - Hordeolum [Recovered/Resolved]
  - Instillation site pain [Recovered/Resolved]
  - Milia [Recovered/Resolved]
